FAERS Safety Report 23804443 (Version 2)
Quarter: 2024Q2

REPORT INFORMATION
  Report Type: Spontaneous
  Country: KR (occurrence: KR)
  Receive Date: 20240501
  Receipt Date: 20240507
  Transmission Date: 20240716
  Serious: No
  Sender: FDA-Public Use
  Company Number: KR-002147023-NVSC2024KR091424

PATIENT
  Age: 63 Year
  Sex: Male

DRUGS (1)
  1. BEOVU [Suspect]
     Active Substance: BROLUCIZUMAB-DBLL
     Indication: Polypoidal choroidal vasculopathy
     Dosage: UNK
     Route: 031

REACTIONS (1)
  - Vitreous opacities [Recovered/Resolved]
